FAERS Safety Report 10365829 (Version 1)
Quarter: 2014Q3

REPORT INFORMATION
  Report Type: Spontaneous
  Country: RU (occurrence: None)
  Receive Date: 20140804
  Receipt Date: 20140804
  Transmission Date: 20150326
  Serious: Yes (Death)
  Sender: FDA-Public Use
  Company Number: FK201403000

PATIENT
  Age: 78 Year
  Sex: Female

DRUGS (2)
  1. PROPOFOL 1% FRESENIUS (PROPOFOL) (PROPOFOL) [Suspect]
     Active Substance: PROPOFOL
     Indication: PRODUCT USED FOR UNKNOWN INDICATION
     Route: 042
  2. ATROPINUM (ATROPINE) [Concomitant]

REACTIONS (3)
  - Anaphylactic shock [None]
  - Cardiac arrest [None]
  - Respiratory arrest [None]
